FAERS Safety Report 4286197-5 (Version None)
Quarter: 2004Q1

REPORT INFORMATION
  Report Type: 
  Country: None (occurrence: None)
  Receive Date: 20040204
  Receipt Date: 20040204
  Transmission Date: 20041129
  Serious: Yes (Other)
  Sender: FDA-Public Use
  Company Number: None

PATIENT
  Age: 42 Year
  Sex: Female
  Weight: 58.9676 kg

DRUGS (1)
  1. CELEXA [Suspect]
     Indication: PREMENSTRUAL SYNDROME
     Dosage: ONE TABLET BY MOUTH
     Route: 048
     Dates: start: 19940126

REACTIONS (7)
  - ANXIETY [None]
  - DIZZINESS [None]
  - FEAR [None]
  - FEELING ABNORMAL [None]
  - FEELING COLD [None]
  - VASODILATATION [None]
  - VISION BLURRED [None]
